FAERS Safety Report 9121796 (Version 1)
Quarter: 2012Q4

REPORT INFORMATION
  Report Type: Spontaneous
  Country: PR (occurrence: None)
  Receive Date: 20121026
  Receipt Date: 20121026
  Transmission Date: 20130627
  Serious: No
  Sender: FDA-Public Use
  Company Number: 2012PR-004396

PATIENT
  Age: 80 Year
  Sex: Female

DRUGS (3)
  1. OMONTYS (PEGINESATIDE) SOLUTION FOR INJECTION [Suspect]
     Indication: NEPHROGENIC ANAEMIA
     Dosage: UNK
09/13/2012  to  UNK
     Dates: start: 20120913
  2. VANCOMYCIN (VANCOMYCIN) [Concomitant]
  3. GENTAMICIN (GENTAMICIN) [Concomitant]

REACTIONS (1)
  - Diarrhoea [None]
